FAERS Safety Report 24867217 (Version 2)
Quarter: 2025Q1

REPORT INFORMATION
  Report Type: Spontaneous
  Country: ES (occurrence: ES)
  Receive Date: 20250121
  Receipt Date: 20250320
  Transmission Date: 20250409
  Serious: Yes (Hospitalization)
  Sender: NOVARTIS
  Company Number: None

PATIENT
  Age: 7 Year
  Sex: Female
  Weight: 31 kg

DRUGS (3)
  1. MEKINIST [Interacting]
     Active Substance: TRAMETINIB DIMETHYL SULFOXIDE
     Indication: Astrocytoma, low grade
     Dosage: 0.5 MG, QD (0,5 MG/D?A)
     Route: 048
     Dates: start: 20240923, end: 20241020
  2. DESMOPRESSIN ACETATE [Interacting]
     Active Substance: DESMOPRESSIN ACETATE
     Indication: Diabetes insipidus
     Route: 060
     Dates: start: 20231015
  3. HYDROCORTISONE [Concomitant]
     Active Substance: HYDROCORTISONE
     Indication: Hypopituitarism
     Dosage: 5 MG, Q12H
     Route: 048
     Dates: start: 20240202

REACTIONS (4)
  - Fluid retention [Not Recovered/Not Resolved]
  - Oedema [Not Recovered/Not Resolved]
  - Hypernatraemia [Not Recovered/Not Resolved]
  - Hyponatraemia [Recovered/Resolved]

NARRATIVE: CASE EVENT DATE: 20240923
